FAERS Safety Report 5183884-1 (Version None)
Quarter: 2006Q4

REPORT INFORMATION
  Report Type: 
  Country: None (occurrence: None)
  Receive Date: 20061220
  Receipt Date: 20060223
  Transmission Date: 20070319
  Serious: No
  Sender: FDA-Public Use
  Company Number: US-GLAXOSMITHKLINE-A0594893A

PATIENT
  Age: 63 Year
  Sex: Female

DRUGS (2)
  1. NICODERM CQ [Suspect]
     Dates: start: 20060105, end: 20060215
  2. NICODERM CQ [Suspect]
     Dates: start: 20060216, end: 20060222

REACTIONS (2)
  - NAUSEA [None]
  - VOMITING [None]
